FAERS Safety Report 13487000 (Version 1)
Quarter: 2017Q2

REPORT INFORMATION
  Report Type: Spontaneous
  Country: US (occurrence: US)
  Receive Date: 20170426
  Receipt Date: 20170426
  Transmission Date: 20170830
  Serious: No
  Sender: FDA-Public Use
  Company Number: US-BAYER-2017-079767

PATIENT

DRUGS (5)
  1. ADVIL [IBUPROFEN] [Suspect]
     Active Substance: IBUPROFEN
     Indication: MIGRAINE
     Dosage: 400 MG, BID
     Dates: start: 201611
  2. ADVIL [IBUPROFEN] [Suspect]
     Active Substance: IBUPROFEN
     Indication: MIGRAINE
     Dosage: 800 MG, QD
     Dates: start: 201701
  3. ALEVE [Suspect]
     Active Substance: NAPROXEN SODIUM
     Indication: MIGRAINE
     Dosage: UNK
  4. ADVIL [IBUPROFEN] [Suspect]
     Active Substance: IBUPROFEN
     Indication: MIGRAINE
     Dosage: 2 DF, QD
     Dates: start: 20170402
  5. ADVIL [IBUPROFEN] [Suspect]
     Active Substance: IBUPROFEN
     Indication: MIGRAINE
     Dosage: 2 DF, UNK
     Dates: start: 20170320

REACTIONS (2)
  - Somnolence [Unknown]
  - Product use in unapproved indication [Unknown]
